FAERS Safety Report 13201489 (Version 1)
Quarter: 2017Q1

REPORT INFORMATION
  Report Type: Spontaneous
  Country: US (occurrence: US)
  Receive Date: 20170209
  Receipt Date: 20170209
  Transmission Date: 20170428
  Serious: No
  Sender: FDA-Public Use
  Company Number: US-ASTRAZENECA-2017SE12865

PATIENT
  Sex: Female

DRUGS (3)
  1. SYMBICORT [Suspect]
     Active Substance: BUDESONIDE\FORMOTEROL FUMARATE DIHYDRATE
     Route: 055
  2. DALIRESP [Suspect]
     Active Substance: ROFLUMILAST
     Route: 048
  3. LOT OF DIFFERENT MEDICATIONS [Concomitant]

REACTIONS (1)
  - Depressed mood [Unknown]
